FAERS Safety Report 5420859-9 (Version None)
Quarter: 2007Q3

REPORT INFORMATION
  Report Type: 
  Country: None (occurrence: None)
  Receive Date: 20070817
  Receipt Date: 20070803
  Transmission Date: 20080115
  Serious: Yes (Life-Threatening, Hospitalization, Disabling)
  Sender: FDA-Public Use
  Company Number: 2007S1006236

PATIENT
  Age: 57 Year
  Sex: Female
  Weight: 103.8737 kg

DRUGS (6)
  1. BENAZEPRIL HCL [Suspect]
     Indication: HYPERTENSION
     Dosage: 20 MG; TWICE A DAY; ORAL
     Route: 048
     Dates: start: 20070201
  2. NOVOLIN 70/30 [Concomitant]
  3. PROTONIX [Concomitant]
  4. TOPROL-XL [Concomitant]
  5. DIOVAN [Concomitant]
  6. THYROID TAB [Concomitant]

REACTIONS (5)
  - ALVEOLITIS ALLERGIC [None]
  - COLLAPSE OF LUNG [None]
  - DYSPNOEA [None]
  - EOSINOPHILIC PNEUMONIA [None]
  - HYPOXIA [None]
